FAERS Safety Report 10062890 (Version 1)
Quarter: 2014Q2

REPORT INFORMATION
  Report Type: Spontaneous
  Country: US (occurrence: US)
  Receive Date: 20140407
  Receipt Date: 20140407
  Transmission Date: 20141212
  Serious: Yes (Hospitalization)
  Sender: FDA-Public Use
  Company Number: PHHY2014US039111

PATIENT
  Age: 60 Year
  Sex: Female

DRUGS (7)
  1. HYDRALAZINE [Suspect]
     Indication: HYPERTENSION
  2. FUROSEMIDE [Suspect]
     Indication: HYPERTENSION
  3. IRON SULFATE [Suspect]
  4. INSULIN [Concomitant]
  5. SIMVASTATIN [Concomitant]
  6. CARVEDILOL [Concomitant]
  7. CLOPIDOGREL [Concomitant]

REACTIONS (7)
  - Gastrointestinal tract mucosal pigmentation [Recovered/Resolved]
  - Haematemesis [Recovered/Resolved]
  - Erythema [Recovered/Resolved]
  - Nausea [Recovered/Resolved]
  - Vomiting [Recovered/Resolved]
  - Pigmentation disorder [Recovered/Resolved]
  - Hypertensive crisis [Recovered/Resolved]
